FAERS Safety Report 22981784 (Version 3)
Quarter: 2024Q1

REPORT INFORMATION
  Report Type: Spontaneous
  Country: US (occurrence: US)
  Receive Date: 20230925
  Receipt Date: 20240110
  Transmission Date: 20240409
  Serious: Yes (Death, Other)
  Sender: FDA-Public Use
  Company Number: US-BRISTOL-MYERS SQUIBB COMPANY-2023-135454

PATIENT
  Age: 71 Year
  Sex: Female
  Weight: 52.62 kg

DRUGS (3)
  1. REVLIMID [Suspect]
     Active Substance: LENALIDOMIDE
     Indication: Diffuse large B-cell lymphoma
     Dosage: DOSE : 25 MG;     FREQ : TAKE ONE BY MOUTH DAILY FOR 21 DAYS, AND 7 DAYS OFF
     Route: 048
     Dates: start: 20230727
  2. REVLIMID [Suspect]
     Active Substance: LENALIDOMIDE
     Dosage: DOSE : 25 MG;     FREQ : TAKE ONE BY MOUTH DAILY FOR 21 DAYS, AND 7 DAYS OFF
     Route: 048
     Dates: start: 20230727
  3. REVLIMID [Suspect]
     Active Substance: LENALIDOMIDE
     Dosage: 3WKSON,2OFF
     Route: 048

REACTIONS (2)
  - Death [Fatal]
  - Off label use [Unknown]
